FAERS Safety Report 18927791 (Version 1)
Quarter: 2021Q1

REPORT INFORMATION
  Report Type: Spontaneous
  Country: US (occurrence: US)
  Receive Date: 20210223
  Receipt Date: 20210223
  Transmission Date: 20210420
  Serious: No
  Sender: FDA-Public Use
  Company Number: US-FERRINGPH-2020FE06167

PATIENT
  Sex: Female

DRUGS (1)
  1. STIMATE [Suspect]
     Active Substance: DESMOPRESSIN ACETATE
     Indication: VON WILLEBRAND^S DISEASE
     Dosage: 300 UG, AS NEEDED
     Route: 045
     Dates: start: 20200704

REACTIONS (4)
  - Headache [Unknown]
  - Recalled product administered [Recovered/Resolved]
  - Fluid retention [Unknown]
  - Out of specification product use [Recovered/Resolved]
